FAERS Safety Report 5170134-5 (Version None)
Quarter: 2006Q4

REPORT INFORMATION
  Report Type: 
  Country: None (occurrence: None)
  Receive Date: 20061201
  Receipt Date: 20061121
  Transmission Date: 20070319
  Serious: Yes (Hospitalization, Other)
  Sender: FDA-Public Use
  Company Number: US018922

PATIENT
  Age: 89 Year
  Sex: Female
  Weight: 51.2565 kg

DRUGS (20)
  1. PROVIGIL [Suspect]
     Indication: NARCOLEPSY
     Dosage: 100 MG QD ORAL
     Route: 048
     Dates: start: 20060801
  2. PROVIGIL [Suspect]
     Indication: SLEEP APNOEA SYNDROME
     Dosage: 100 MG QD ORAL
     Route: 048
     Dates: start: 20060801
  3. PROVIGIL [Suspect]
     Indication: NARCOLEPSY
     Dosage: 200 MG QD ORAL
     Route: 048
     Dates: end: 20061105
  4. PROVIGIL [Suspect]
     Indication: SLEEP APNOEA SYNDROME
     Dosage: 200 MG QD ORAL
     Route: 048
     Dates: end: 20061105
  5. PROVIGIL [Suspect]
     Indication: NARCOLEPSY
     Dosage: 300 MG QD ORAL
     Route: 048
     Dates: start: 20061106, end: 20061110
  6. PROVIGIL [Suspect]
     Indication: SLEEP APNOEA SYNDROME
     Dosage: 300 MG QD ORAL
     Route: 048
     Dates: start: 20061106, end: 20061110
  7. PROVIGIL [Suspect]
     Indication: NARCOLEPSY
     Dosage: 400 MG QD ORAL
     Route: 048
     Dates: start: 20061111, end: 20061112
  8. PROVIGIL [Suspect]
     Indication: SLEEP APNOEA SYNDROME
     Dosage: 400 MG QD ORAL
     Route: 048
     Dates: start: 20061111, end: 20061112
  9. PROVIGIL [Suspect]
     Indication: NARCOLEPSY
     Dosage: 800 MG QD ORAL
     Route: 048
     Dates: start: 20061113, end: 20061117
  10. PROVIGIL [Suspect]
     Indication: SLEEP APNOEA SYNDROME
     Dosage: 800 MG QD ORAL
     Route: 048
     Dates: start: 20061113, end: 20061117
  11. ADVAIR DISKUS 100/50 [Concomitant]
  12. ATROVENT [Concomitant]
  13. HYDROCHLOROTHIAZIDE [Concomitant]
  14. PREDNISONE TAB [Concomitant]
  15. FOLIC ACID [Concomitant]
  16. VITAMIN B-12 [Concomitant]
  17. DIGOXIN [Concomitant]
  18. HALDOL [Concomitant]
  19. LOVASTATIN [Concomitant]
  20. ALBUTEROL [Concomitant]

REACTIONS (7)
  - AGGRESSION [None]
  - APHASIA [None]
  - CATAPLEXY [None]
  - HYPERSOMNIA [None]
  - MOBILITY DECREASED [None]
  - ORAL INTAKE REDUCED [None]
  - SPEECH DISORDER [None]
